FAERS Safety Report 12686549 (Version 1)
Quarter: 2016Q3

REPORT INFORMATION
  Report Type: Spontaneous
  Country: KR (occurrence: KR)
  Receive Date: 20160825
  Receipt Date: 20160825
  Transmission Date: 20161109
  Serious: Yes (Other)
  Sender: FDA-Public Use
  Company Number: KR-GUERBET LLC-1056750

PATIENT
  Age: 47 Year
  Sex: Female

DRUGS (1)
  1. OPTIRAY [Suspect]
     Active Substance: IOVERSOL
     Indication: COMPUTERISED TOMOGRAM THORAX
     Route: 042

REACTIONS (2)
  - Vessel puncture site haemorrhage [Recovered/Resolved]
  - Peripheral swelling [Recovered/Resolved]
